FAERS Safety Report 25347969 (Version 1)
Quarter: 2025Q2

REPORT INFORMATION
  Report Type: Spontaneous
  Country: US (occurrence: None)
  Receive Date: 20250522
  Receipt Date: 20250522
  Transmission Date: 20250716
  Serious: Yes (Hospitalization)
  Sender: FDA-CTU
  Company Number: None

PATIENT
  Sex: Male

DRUGS (11)
  1. LENALIDOMIDE [Suspect]
     Active Substance: LENALIDOMIDE
     Indication: Haematopoietic neoplasm
     Route: 048
     Dates: start: 20250423
  2. 4X PROBIOTIC [Concomitant]
  3. ACETAMINOPHE [Concomitant]
  4. ACYCLOVIR [Concomitant]
     Active Substance: ACYCLOVIR
  5. ASPIRIN [Concomitant]
     Active Substance: ASPIRIN
  6. BENEFIBER [Concomitant]
     Active Substance: STARCH, WHEAT
  7. CALCIUM CIT [Concomitant]
  8. CARVEDILOL [Concomitant]
     Active Substance: CARVEDILOL
  9. DEXAMETHASONE [Concomitant]
     Active Substance: DEXAMETHASONE
  10. DIPHENHYDRAM [Concomitant]
  11. DULOXETINE [Concomitant]
     Active Substance: DULOXETINE

REACTIONS (1)
  - Intentional dose omission [None]
